FAERS Safety Report 16707833 (Version 1)
Quarter: 2019Q3

REPORT INFORMATION
  Report Type: Spontaneous
  Country: CA (occurrence: CA)
  Receive Date: 20190815
  Receipt Date: 20190815
  Transmission Date: 20191004
  Serious: Yes (Other)
  Sender: FDA-Public Use
  Company Number: PHHY2019CA189354

PATIENT
  Sex: Female

DRUGS (1)
  1. FEMARA [Suspect]
     Active Substance: LETROZOLE
     Indication: NEOPLASM MALIGNANT
     Dosage: UNK
     Route: 065

REACTIONS (13)
  - Muscle atrophy [Unknown]
  - Fluid retention [Unknown]
  - Paraesthesia [Unknown]
  - Myocardial infarction [Unknown]
  - Urine potassium decreased [Unknown]
  - Urine magnesium decreased [Unknown]
  - Electrolyte imbalance [Unknown]
  - Pain [Unknown]
  - Blood calcium abnormal [Unknown]
  - Kidney infection [Not Recovered/Not Resolved]
  - Amino acid level decreased [Unknown]
  - Abdominal distension [Not Recovered/Not Resolved]
  - Chest pain [Unknown]
